FAERS Safety Report 6782083-7 (Version None)
Quarter: 2010Q2

REPORT INFORMATION
  Report Type: 
  Country: None (occurrence: None)
  Receive Date: 20100621
  Receipt Date: 20100611
  Transmission Date: 20101027
  Serious: Yes (Other)
  Sender: FDA-Public Use
  Company Number: B0661482A

PATIENT
  Age: 50 Year
  Sex: Female

DRUGS (1)
  1. TYKERB [Suspect]
     Dosage: 2500MG PER DAY
     Route: 048
     Dates: start: 20100501

REACTIONS (3)
  - HEPATOTOXICITY [None]
  - OVERDOSE [None]
  - RASH [None]
